FAERS Safety Report 20357166 (Version 1)
Quarter: 2022Q1

REPORT INFORMATION
  Report Type: Spontaneous
  Country: HU (occurrence: HU)
  Receive Date: 20220120
  Receipt Date: 20220120
  Transmission Date: 20220423
  Serious: Yes (Other)
  Sender: FDA-Public Use
  Company Number: HU-PFIZER INC-202200033270

PATIENT
  Age: 66 Year
  Sex: Male

DRUGS (2)
  1. LORLATINIB [Suspect]
     Active Substance: LORLATINIB
     Indication: Lung adenocarcinoma
     Dosage: 1 DF, DAILY TAKEN CONTINUOUSLY
     Route: 048
  2. LORLATINIB [Suspect]
     Active Substance: LORLATINIB
     Indication: Metastasis

REACTIONS (4)
  - Nervous system disorder [Unknown]
  - Anger [Unknown]
  - Confusional state [Unknown]
  - Aggression [Unknown]
